FAERS Safety Report 24166438 (Version 1)
Quarter: 2024Q3

REPORT INFORMATION
  Report Type: Report from Study
  Country: US (occurrence: US)
  Receive Date: 20240802
  Receipt Date: 20240802
  Transmission Date: 20241017
  Serious: Yes (Disabling)
  Sender: ABBVIE
  Company Number: US-ABBVIE-5860844

PATIENT
  Sex: Male

DRUGS (1)
  1. VRAYLAR [Suspect]
     Active Substance: CARIPRAZINE
     Indication: Major depression
     Dosage: FIRST ADMIN DATE: FOR YEARS,?4.5 ONCE DAY
     Route: 048

REACTIONS (4)
  - Disability [Unknown]
  - Cardiac disorder [Unknown]
  - Spinal disorder [Unknown]
  - Mental disorder [Unknown]
